FAERS Safety Report 14339621 (Version 8)
Quarter: 2020Q4

REPORT INFORMATION
  Report Type: Spontaneous
  Country: PL (occurrence: PL)
  Receive Date: 20171230
  Receipt Date: 20201202
  Transmission Date: 20210113
  Serious: Yes (Life-Threatening, Hospitalization, Disabling, Other)
  Sender: FDA-Public Use
  Company Number: PL-AUROBINDO-AUR-APL-2017-48301

PATIENT
  Age: 50 Year
  Sex: Female

DRUGS (107)
  1. TRAMADOL. [Suspect]
     Active Substance: TRAMADOL
     Dosage: ()
     Route: 065
  2. TRAMADOL. [Suspect]
     Active Substance: TRAMADOL
     Dosage: ()
     Route: 065
  3. TRAMADOL. [Suspect]
     Active Substance: TRAMADOL
     Dosage: ()
     Route: 065
  4. PERINDOPRIL [Suspect]
     Active Substance: PERINDOPRIL
     Dosage: UNK ()
     Route: 065
  5. SERTRALINE [Suspect]
     Active Substance: SERTRALINE HYDROCHLORIDE
     Dosage: 50 MG, AM (IN THE MORNING)
     Route: 048
  6. ESCITALOPRAM [Suspect]
     Active Substance: ESCITALOPRAM OXALATE
     Dosage: 10 MG, HS
     Route: 048
  7. ESCITALOPRAM [Suspect]
     Active Substance: ESCITALOPRAM OXALATE
     Dosage: DOCTOR SWITCHED THE PATIENT FROM SERTRALINE TO ESCITALOPRAM
     Route: 048
  8. ATORVASTATIN [Suspect]
     Active Substance: ATORVASTATIN
     Dosage: UNK (BEDTIME) ()
     Route: 048
  9. TROSICAM [Suspect]
     Active Substance: MELOXICAM
     Dosage: UNK ()
     Route: 065
  10. DOXEPIN [Suspect]
     Active Substance: DOXEPIN
     Dosage: 25 MG, HS
     Route: 048
  11. TRAMADOL. [Suspect]
     Active Substance: TRAMADOL
     Dosage: ()
     Route: 065
  12. TRAMADOL. [Suspect]
     Active Substance: TRAMADOL
     Dosage: TRAMADOL IN COMBINATION WITH MELOXICAM FOR ABOUT TWO YEARS AGO ()
     Route: 048
  13. TRAMADOL. [Suspect]
     Active Substance: TRAMADOL
     Dosage: ()
     Route: 065
  14. SERTRALINE [Suspect]
     Active Substance: SERTRALINE HYDROCHLORIDE
     Dosage: 50 MG, QD
     Route: 065
  15. SERTRALINE [Suspect]
     Active Substance: SERTRALINE HYDROCHLORIDE
     Dosage: 50 MG, AM (IN THE MORNING)
     Route: 048
  16. ESCITALOPRAM [Suspect]
     Active Substance: ESCITALOPRAM OXALATE
     Indication: PRODUCT USED FOR UNKNOWN INDICATION
     Dosage: UNK
     Route: 065
  17. ESCITALOPRAM [Suspect]
     Active Substance: ESCITALOPRAM OXALATE
     Dosage: 10 MG, HS
     Route: 048
  18. TROSICAM [Suspect]
     Active Substance: MELOXICAM
     Dosage: UNK ()
     Route: 065
  19. CLARITHROMYCIN. [Suspect]
     Active Substance: CLARITHROMYCIN
     Dosage: TWO 10 DAY CYCLES. ()
     Route: 048
  20. CLARITHROMYCIN. [Suspect]
     Active Substance: CLARITHROMYCIN
     Dosage: TWO 10 DAY CYCLES. ()
     Route: 048
  21. POLSEN [Suspect]
     Active Substance: ZOLPIDEM TARTRATE
     Dosage: 10 MG AT BEDTIME
     Route: 048
  22. DOXEPIN [Suspect]
     Active Substance: DOXEPIN
     Dosage: 25 MG, HS
     Route: 048
  23. PERINDOPRIL [Suspect]
     Active Substance: PERINDOPRIL
     Dosage: ()
     Route: 065
  24. PERINDOPRIL [Suspect]
     Active Substance: PERINDOPRIL
     Dosage: UNK ()
     Route: 048
  25. SERTRALINE [Suspect]
     Active Substance: SERTRALINE HYDROCHLORIDE
     Dosage: 50 MG, AM (IN THE MORNING)
     Route: 048
  26. ESCITALOPRAM [Suspect]
     Active Substance: ESCITALOPRAM OXALATE
     Dosage: DOCTOR SWITCHED THE PATIENT FROM SERTRALINE TO ESCITALOPRAM
     Route: 048
  27. ESCITALOPRAM [Suspect]
     Active Substance: ESCITALOPRAM OXALATE
     Dosage: 10 MG, HS
     Route: 048
  28. ATORVASTATIN [Suspect]
     Active Substance: ATORVASTATIN
     Dosage: UNK (BEDTIME) ()
     Route: 048
  29. BISOPROLOL [Suspect]
     Active Substance: BISOPROLOL
     Dosage: UNK ()
     Route: 065
  30. TROSICAM [Suspect]
     Active Substance: MELOXICAM
     Dosage: UNK ()
     Route: 065
  31. CONCOR [Suspect]
     Active Substance: BISOPROLOL FUMARATE
     Dosage: ()
     Route: 065
  32. CLARITHROMYCIN. [Suspect]
     Active Substance: CLARITHROMYCIN
     Dosage: B/D ()
     Route: 048
  33. CLARITHROMYCIN. [Suspect]
     Active Substance: CLARITHROMYCIN
     Dosage: UNK (BEDTIME), TWO, 10-DAY TREATMENT CYCLES COURSES ()
     Route: 048
  34. CLARITHROMYCIN. [Suspect]
     Active Substance: CLARITHROMYCIN
     Dosage: ()
     Route: 065
  35. ATORIS [Suspect]
     Active Substance: ATORVASTATIN CALCIUM
     Indication: PRODUCT USED FOR UNKNOWN INDICATION
     Dosage: UNK
     Route: 065
  36. DOXEPIN [Suspect]
     Active Substance: DOXEPIN
     Dosage: 25 MG, HS
     Route: 048
  37. TRAMADOL. [Suspect]
     Active Substance: TRAMADOL
     Dosage: UNK (BEDTIME), TRAMADOL IN COMBINATION WITH MELOXICAM FOR ABOUT TWO YEARS AGO ()
     Route: 048
  38. SERTRALINE [Suspect]
     Active Substance: SERTRALINE HYDROCHLORIDE
     Indication: PRODUCT USED FOR UNKNOWN INDICATION
     Dosage: 50 MG IN THE MORNING
     Route: 065
  39. BISOPROLOL [Suspect]
     Active Substance: BISOPROLOL
     Dosage: UNK ()
     Route: 065
  40. TROSICAM [Suspect]
     Active Substance: MELOXICAM
     Indication: ARTHRALGIA
     Dosage: UNK
     Route: 065
  41. CLARITHROMYCIN. [Suspect]
     Active Substance: CLARITHROMYCIN
     Indication: TINNITUS
     Dosage: TWO 10 DAY COURSES
     Route: 065
  42. CLARITHROMYCIN. [Suspect]
     Active Substance: CLARITHROMYCIN
     Dosage: ()
     Route: 065
  43. CLARITHROMYCIN. [Suspect]
     Active Substance: CLARITHROMYCIN
     Dosage: TWO 10 DAY CYCLES. ()
     Route: 048
  44. ATORIS [Suspect]
     Active Substance: ATORVASTATIN CALCIUM
     Dosage: ()
     Route: 065
  45. POLSEN [Suspect]
     Active Substance: ZOLPIDEM TARTRATE
     Dosage: 10 MG AT BEDTIME
     Route: 048
  46. PERINDOPRIL [Concomitant]
     Active Substance: PERINDOPRIL
     Indication: HYPERTENSION
     Dosage: ()
     Route: 065
  47. ATORVASTATIN [Concomitant]
     Active Substance: ATORVASTATIN
     Indication: HYPERCHOLESTEROLAEMIA
     Dosage: ()
     Route: 065
  48. TRAMADOL. [Suspect]
     Active Substance: TRAMADOL
     Dosage: ()
     Route: 048
  49. PERINDOPRIL [Suspect]
     Active Substance: PERINDOPRIL
     Dosage: ()
     Route: 065
  50. PERINDOPRIL [Suspect]
     Active Substance: PERINDOPRIL
     Dosage: UNK ()
     Route: 048
  51. SERTRALINE [Suspect]
     Active Substance: SERTRALINE HYDROCHLORIDE
     Dosage: 50 MG, AM (IN THE MORNING)
     Route: 048
  52. ESCITALOPRAM [Suspect]
     Active Substance: ESCITALOPRAM OXALATE
     Dosage: UNK ()
     Route: 065
  53. ESCITALOPRAM [Suspect]
     Active Substance: ESCITALOPRAM OXALATE
     Dosage: DOCTOR SWITCHED THE PATIENT FROM SERTRALINE TO ESCITALOPRAM
     Route: 065
  54. ESCITALOPRAM [Suspect]
     Active Substance: ESCITALOPRAM OXALATE
     Dosage: 10 MG, HS
     Route: 048
  55. ATORVASTATIN [Suspect]
     Active Substance: ATORVASTATIN
     Indication: PRODUCT USED FOR UNKNOWN INDICATION
     Dosage: UNK (BEDTIME) ()
     Route: 048
  56. BISOPROLOL [Suspect]
     Active Substance: BISOPROLOL
     Dosage: UNK ()
     Route: 065
  57. TROSICAM [Suspect]
     Active Substance: MELOXICAM
     Indication: OSTEOARTHRITIS
     Dosage: ()
     Route: 065
  58. CONCOR [Suspect]
     Active Substance: BISOPROLOL FUMARATE
     Dosage: ()
     Route: 065
  59. CONCOR [Suspect]
     Active Substance: BISOPROLOL FUMARATE
     Dosage: ()
     Route: 065
  60. ATORIS [Suspect]
     Active Substance: ATORVASTATIN CALCIUM
     Dosage: ()
     Route: 065
  61. DOXEPIN [Suspect]
     Active Substance: DOXEPIN
     Indication: DEPRESSION
     Dosage: ()
     Route: 065
  62. PERINDOPRIL [Suspect]
     Active Substance: PERINDOPRIL
     Dosage: ()
     Route: 065
  63. PERINDOPRIL [Suspect]
     Active Substance: PERINDOPRIL
     Dosage: UNK ()
     Route: 048
  64. SERTRALINE [Suspect]
     Active Substance: SERTRALINE HYDROCHLORIDE
     Dosage: 50 MG, QD
     Route: 065
  65. SERTRALINE [Suspect]
     Active Substance: SERTRALINE HYDROCHLORIDE
     Dosage: 50 MG, QD
     Route: 065
  66. ESCITALOPRAM [Suspect]
     Active Substance: ESCITALOPRAM OXALATE
     Dosage: 10 MG, BEFORE SLEEPING
     Route: 048
  67. ESCITALOPRAM [Suspect]
     Active Substance: ESCITALOPRAM OXALATE
     Dosage: DOCTOR SWITCHED THE PATIENT FROM SERTRALINE TO ESCITALOPRAM
     Route: 048
  68. CLARITHROMYCIN. [Suspect]
     Active Substance: CLARITHROMYCIN
     Indication: PRODUCT USED FOR UNKNOWN INDICATION
     Dosage: ()
     Route: 065
  69. CLARITHROMYCIN. [Suspect]
     Active Substance: CLARITHROMYCIN
     Dosage: ()
     Route: 065
  70. ATORIS [Suspect]
     Active Substance: ATORVASTATIN CALCIUM
     Dosage: ()
     Route: 065
  71. POLSEN [Suspect]
     Active Substance: ZOLPIDEM TARTRATE
     Indication: DEPRESSION
     Dosage: 10 MG AT BEDTIME
     Route: 065
  72. DOXEPIN [Suspect]
     Active Substance: DOXEPIN
     Dosage: 25 MG, OD, AT BED TIME
     Route: 065
  73. MOVALIS [Suspect]
     Active Substance: MELOXICAM
     Indication: OSTEOARTHRITIS
     Dosage: TRAMADOL IN COMBINATION WITH MELOXICAM, FOR ABOUT TWO YEARS AGO ()
     Route: 065
  74. TRAMADOL. [Suspect]
     Active Substance: TRAMADOL
     Indication: PRODUCT USED FOR UNKNOWN INDICATION
     Dosage: B/D ()
     Route: 048
  75. TRAMADOL. [Suspect]
     Active Substance: TRAMADOL
     Dosage: TRAMADOL IN COMBINATION WITH MELOXICAM FOR ABOUT TWO YEARS AGO ()
     Route: 048
  76. TRAMADOL. [Suspect]
     Active Substance: TRAMADOL
     Dosage: TRAMADOL IN COMBINATION WITH MELOXICAM FOR ABOUT TWO YEARS AGO ()
     Route: 048
  77. PERINDOPRIL [Suspect]
     Active Substance: PERINDOPRIL
     Dosage: ()
     Route: 065
  78. SERTRALINE [Suspect]
     Active Substance: SERTRALINE HYDROCHLORIDE
     Dosage: 50 MG, OD, (IN THE MORNING)
     Route: 048
  79. SERTRALINE [Suspect]
     Active Substance: SERTRALINE HYDROCHLORIDE
     Dosage: 50 MG, QD
     Route: 065
  80. ESCITALOPRAM [Suspect]
     Active Substance: ESCITALOPRAM OXALATE
     Dosage: 10 MG, HS
     Route: 048
  81. ATORVASTATIN [Suspect]
     Active Substance: ATORVASTATIN
     Dosage: ()
     Route: 065
  82. TROSICAM [Suspect]
     Active Substance: MELOXICAM
     Dosage: TRAMADOL IN COMBINATION WITH MELOXICAM, FOR ABOUT TWO YEARS AGO ()
     Route: 048
  83. CONCOR [Suspect]
     Active Substance: BISOPROLOL FUMARATE
     Indication: PRODUCT USED FOR UNKNOWN INDICATION
     Dosage: UNK
     Route: 065
  84. CONCOR [Suspect]
     Active Substance: BISOPROLOL FUMARATE
     Dosage: UNK ()
     Route: 065
  85. POLSEN [Suspect]
     Active Substance: ZOLPIDEM TARTRATE
     Indication: SLEEP DISORDER
     Dosage: 10 MG AT BEDTIME
     Route: 065
  86. DOXEPIN [Suspect]
     Active Substance: DOXEPIN
     Indication: DEPRESSED MOOD
     Dosage: ()
     Route: 065
  87. DOXEPIN [Suspect]
     Active Substance: DOXEPIN
     Route: 065
  88. DOXEPIN [Suspect]
     Active Substance: DOXEPIN
     Dosage: 25 MG, HS
     Route: 048
  89. ZOLPIDEM [Suspect]
     Active Substance: ZOLPIDEM TARTRATE
     Indication: DEPRESSED MOOD
     Dosage: 10 MILLIGRAM DAILY; AT BEDTIME
     Route: 048
  90. ZOLPIDEM [Suspect]
     Active Substance: ZOLPIDEM TARTRATE
     Dosage: 10 MILLIGRAM DAILY; AT BEDTIME
     Route: 048
  91. TRAMADOL. [Suspect]
     Active Substance: TRAMADOL
     Dosage: TRAMADOL IN COMBINATION WITH MELOXICAM FOR ABOUT TWO YEARS AGO ()
     Route: 065
  92. PERINDOPRIL [Suspect]
     Active Substance: PERINDOPRIL
     Indication: PRODUCT USED FOR UNKNOWN INDICATION
     Dosage: UNK
     Route: 065
  93. PERINDOPRIL [Suspect]
     Active Substance: PERINDOPRIL
     Dosage: UNK ()
     Route: 048
  94. ESCITALOPRAM [Suspect]
     Active Substance: ESCITALOPRAM OXALATE
     Dosage: ()
     Route: 065
  95. ATORVASTATIN [Suspect]
     Active Substance: ATORVASTATIN
     Dosage: UNK (BEDTIME) ()
     Route: 048
  96. BISOPROLOL [Suspect]
     Active Substance: BISOPROLOL
     Indication: PRODUCT USED FOR UNKNOWN INDICATION
     Dosage: UNK
     Route: 065
  97. TROSICAM [Suspect]
     Active Substance: MELOXICAM
     Dosage: UNK ()
     Route: 065
  98. TROSICAM [Suspect]
     Active Substance: MELOXICAM
     Dosage: TRAMADOL IN COMBINATION WITH MELOXICAM, FOR ABOUT TWO YEARS AGO ()
     Route: 048
  99. CONCOR [Suspect]
     Active Substance: BISOPROLOL FUMARATE
     Dosage: ()
     Route: 065
  100. CLARITHROMYCIN. [Suspect]
     Active Substance: CLARITHROMYCIN
     Dosage: TWO 10 DAY COURSES ()
     Route: 065
  101. CLARITHROMYCIN. [Suspect]
     Active Substance: CLARITHROMYCIN
     Dosage: TOTAL DRUG DURATION: 2 X 10 DAYS ()
     Route: 048
  102. ATORIS [Suspect]
     Active Substance: ATORVASTATIN CALCIUM
     Dosage: ()
     Route: 065
  103. POLSEN [Suspect]
     Active Substance: ZOLPIDEM TARTRATE
     Dosage: 10 MG AT BEDTIME
     Route: 048
  104. DOXEPIN [Suspect]
     Active Substance: DOXEPIN
     Indication: AFFECTIVE DISORDER
     Dosage: 25 MG AT BEDTIME
     Route: 065
  105. DOXEPIN [Suspect]
     Active Substance: DOXEPIN
     Dosage: 25 MG AT BEDTIME
     Route: 065
  106. ZOLPIDEM [Suspect]
     Active Substance: ZOLPIDEM TARTRATE
     Indication: SLEEP DISORDER
     Dosage: 10 MILLIGRAM DAILY; AT BEDTIME
     Route: 048
  107. ZOLPIDEM [Suspect]
     Active Substance: ZOLPIDEM TARTRATE
     Dosage: 10 MILLIGRAM DAILY; AT BEDTIME
     Route: 048

REACTIONS (15)
  - Impaired work ability [Recovered/Resolved]
  - Condition aggravated [Recovering/Resolving]
  - Drug ineffective [Unknown]
  - Intentional product misuse [Recovering/Resolving]
  - Insomnia [Recovering/Resolving]
  - Product use in unapproved indication [Recovered/Resolved]
  - Suicide attempt [Recovered/Resolved]
  - Affective disorder [Recovering/Resolving]
  - Loss of consciousness [Recovered/Resolved]
  - Drug abuse [Unknown]
  - Loss of personal independence in daily activities [Recovered/Resolved]
  - Tinnitus [Recovered/Resolved]
  - Overdose [Recovered/Resolved]
  - Intentional overdose [Unknown]
  - Depression [Recovering/Resolving]
